FAERS Safety Report 10279491 (Version 2)
Quarter: 2014Q3

REPORT INFORMATION
  Report Type: Report from Study
  Country: GB (occurrence: None)
  Receive Date: 20140701
  Receipt Date: 20140709
  Transmission Date: 20150326
  Serious: Yes (Death, Other)
  Sender: FDA-Public Use
  Company Number: VAL_03188_2014

PATIENT
  Sex: Male

DRUGS (12)
  1. AMLODIPINE [Suspect]
     Active Substance: AMLODIPINE BESYLATE
     Indication: HYPERTENSION
     Dosage: 30 MG, DF ORAL
     Route: 048
     Dates: start: 20120705
  2. SERTRALINE [Suspect]
     Active Substance: SERTRALINE HYDROCHLORIDE
     Indication: DEPRESSION
     Dosage: 50 MG, DF ORAL
     Route: 048
     Dates: start: 20121210, end: 20140101
  3. PARACETAMOL (PARACETAMOL) [Suspect]
     Active Substance: ACETAMINOPHEN
     Indication: ANALGESIC THERAPY
     Route: 048
     Dates: start: 20121112
  4. VENLAFAXINE [Suspect]
     Active Substance: VENLAFAXINE HYDROCHLORIDE
     Indication: DEPRESSION
     Dosage: 75 MG, DF ORAL
     Route: 048
     Dates: start: 20140226
  5. CO-DYDRAMOL [Suspect]
     Active Substance: ACETAMINOPHEN\DIHYDROCODEINE
     Indication: ANALGESIC THERAPY
     Dosage: 2000 MG, DF ORAL
     Route: 048
     Dates: start: 20140109
  6. METOPROLOL (METOPROLOL) [Suspect]
     Active Substance: METOPROLOL
     Indication: HYPERTENSION
     Dosage: 300 MG, DF ORAL
     Route: 048
     Dates: start: 20120705
  7. IBUPROFEN (IBUPROFEN) [Suspect]
     Active Substance: IBUPROFEN
     Indication: ANALGESIC THERAPY
     Dosage: 1200 MG, DF ORAL
     Route: 048
     Dates: start: 20140109
  8. SILDENAFIL (SILDENAFIL) [Suspect]
     Active Substance: SILDENAFIL
     Indication: ERECTILE DYSFUNCTION
     Route: 048
     Dates: start: 20130220
  9. LIORESAL [Suspect]
     Active Substance: BACLOFEN
     Indication: MUSCLE SPASTICITY
     Dosage: 100 UG PER DAY INTRATHEAL
     Route: 037
     Dates: start: 20140117, end: 20140119
  10. RAMIPRIL (RAMIPRIL) [Suspect]
     Active Substance: RAMIPRIL
     Indication: HYPERTENSION
     Dosage: 25 MG, DF ORAL
     Route: 048
     Dates: start: 20140113
  11. BACLOFEN (BACLOFEN) [Suspect]
     Active Substance: BACLOFEN
     Indication: MUSCLE SPASTICITY
     Dosage: 60 MG, DF ORAL
     Route: 048
     Dates: start: 20120801, end: 20140120
  12. ZOPICLONE (ZOPICLONE) [Suspect]
     Active Substance: ZOPICLONE
     Indication: INSOMNIA
     Dosage: 3.75 MG, DF ORAL
     Route: 048
     Dates: start: 20130220

REACTIONS (5)
  - Insomnia [None]
  - Injury [None]
  - Fall [None]
  - Concomitant disease aggravated [None]
  - Sudden death [None]
